FAERS Safety Report 5586839-8 (Version None)
Quarter: 2008Q1

REPORT INFORMATION
  Report Type: 
  Country: None (occurrence: None)
  Receive Date: 20080110
  Receipt Date: 20071226
  Transmission Date: 20080703
  Serious: Yes (Life-Threatening)
  Sender: FDA-Public Use
  Company Number: JP-ASTRAZENECA-2007AP08071

PATIENT
  Age: 502 Month
  Sex: Female

DRUGS (5)
  1. SEROQUEL [Suspect]
     Indication: SCHIZOPHRENIA
     Route: 048
     Dates: start: 20071127, end: 20071202
  2. SEROQUEL [Suspect]
     Route: 048
     Dates: start: 20071203, end: 20071206
  3. SEROQUEL [Suspect]
     Dosage: DIVIDED INTO 3 DOSES
     Route: 048
     Dates: start: 20071207, end: 20071213
  4. BIOFERMIN [Concomitant]
     Route: 048
     Dates: start: 20071127
  5. FLUNITRAZEPAM [Concomitant]
     Indication: SCHIZOPHRENIA
     Route: 048
     Dates: start: 20071203, end: 20071204

REACTIONS (2)
  - HYPERPROLACTINAEMIA [None]
  - HYPOTHERMIA [None]
